FAERS Safety Report 7112923-3 (Version None)
Quarter: 2010Q4

REPORT INFORMATION
  Report Type: 
  Country: None (occurrence: None)
  Receive Date: 20101119
  Receipt Date: 20100902
  Transmission Date: 20110411
  Serious: No
  Sender: FDA-Public Use
  Company Number: US-BRISTOL-MYERS SQUIBB COMPANY-15271414

PATIENT
  Age: 85 Year
  Sex: Female

DRUGS (2)
  1. AVALIDE [Suspect]
     Dosage: THERAPY DURATION:2 YEARS
  2. MULTAQ [Concomitant]
     Dosage: A MONTH AGO

REACTIONS (1)
  - BLOOD CREATININE INCREASED [None]
